FAERS Safety Report 4289258-X (Version None)
Quarter: 2004Q1

REPORT INFORMATION
  Report Type: 
  Country: None (occurrence: None)
  Receive Date: 20040210
  Receipt Date: 20031218
  Transmission Date: 20041129
  Serious: Yes (Hospitalization)
  Sender: FDA-Public Use
  Company Number: 200320574US

PATIENT
  Sex: 0
  Weight: 63.6 kg

DRUGS (3)
  1. ARAVA [Suspect]
     Indication: RHEUMATOID ARTHRITIS
     Route: 048
  2. METHOTREXATE [Concomitant]
     Route: 048
  3. PREDNISONE [Concomitant]
     Route: 048

REACTIONS (4)
  - ANAEMIA [None]
  - DRUG TOXICITY [None]
  - NEUTROPENIA [None]
  - THROMBOCYTOPENIA [None]
